FAERS Safety Report 6290708-8 (Version None)
Quarter: 2009Q3

REPORT INFORMATION
  Report Type: 
  Country: None (occurrence: None)
  Receive Date: 20090728
  Receipt Date: 20090728
  Transmission Date: 20100115
  Serious: Yes (Hospitalization)
  Sender: FDA-Public Use
  Company Number: None

PATIENT
  Age: 32 Year
  Sex: Female
  Weight: 79.3795 kg

DRUGS (1)
  1. METFORMIN HCL [Suspect]
     Indication: POLYCYSTIC OVARIES
     Dosage: 500MG DAILY PO
     Route: 048
     Dates: start: 20090708, end: 20090721

REACTIONS (7)
  - BLISTER [None]
  - IMPAIRED WORK ABILITY [None]
  - MOBILITY DECREASED [None]
  - PAIN [None]
  - SKIN DISCOLOURATION [None]
  - THERMAL BURN [None]
  - UNEVALUABLE EVENT [None]
